FAERS Safety Report 8814727 (Version 1)
Quarter: 2012Q4

REPORT INFORMATION
  Report Type: 
  Country: IT (occurrence: IT)
  Receive Date: 20120928
  Receipt Date: 20120928
  Transmission Date: 20130627
  Serious: Yes (Hospitalization)
  Sender: FDA-Public Use
  Company Number: IT-BAYER-2012-100190

PATIENT
  Age: 82 Year
  Sex: Female

DRUGS (5)
  1. CARDIOASPIRIN [Suspect]
     Indication: THROMBOSIS PROPHYLAXIS
     Dosage: 100 mg, QD
     Route: 048
     Dates: start: 20120601, end: 20120903
  2. PLAVIX [Suspect]
     Indication: THROMBOSIS PROPHYLAXIS
     Dosage: Daily dose 75 mg
     Route: 048
     Dates: start: 20120601, end: 20120903
  3. PANTORC [Concomitant]
     Indication: PROPHYLAXIS
     Dosage: Daily dose 20 mg
     Route: 048
  4. TAREG [Concomitant]
     Indication: HYPERTENSION
     Dosage: Daily dose 40 mg
     Route: 048
  5. CARDICOR [Concomitant]
     Indication: HYPERTENSION
     Dosage: Daily dose 1.25 mg
     Route: 048

REACTIONS (2)
  - Rectal haemorrhage [Recovered/Resolved]
  - Diverticulum intestinal [Recovered/Resolved]
